FAERS Safety Report 4295390-7 (Version None)
Quarter: 2004Q1

REPORT INFORMATION
  Report Type: 
  Country: None (occurrence: None)
  Receive Date: 20040216
  Receipt Date: 20030710
  Transmission Date: 20041129
  Serious: No
  Sender: FDA-Public Use
  Company Number: US-GLAXOSMITHKLINE-A0416661A

PATIENT
  Age: 70 Year
  Sex: Male

DRUGS (7)
  1. LAMICTAL [Suspect]
     Indication: AGITATION
     Route: 048
  2. CELEXA [Suspect]
     Indication: AGITATION
     Dosage: 20MG PER DAY
     Route: 048
     Dates: start: 20030626
  3. PROVIGIL [Concomitant]
  4. MYSOLINE [Concomitant]
  5. SYNTHROID [Concomitant]
  6. NORVASC [Concomitant]
  7. UNSPECIFIED MEDICATIONS [Concomitant]

REACTIONS (3)
  - CONFUSIONAL STATE [None]
  - MOTOR DYSFUNCTION [None]
  - TREMOR [None]
